FAERS Safety Report 20643706 (Version 1)
Quarter: 2022Q1

REPORT INFORMATION
  Report Type: Spontaneous
  Country: FR (occurrence: FR)
  Receive Date: 20220328
  Receipt Date: 20220328
  Transmission Date: 20220424
  Serious: Yes (Other)
  Sender: FDA-Public Use
  Company Number: FR-SANOFI-01020895

PATIENT
  Age: 60 Year
  Sex: Female

DRUGS (3)
  1. RIFAMPIN [Suspect]
     Active Substance: RIFAMPIN
     Route: 065
  2. XELODA [Concomitant]
     Active Substance: CAPECITABINE
  3. ZYRTEC [Concomitant]
     Active Substance: CETIRIZINE HYDROCHLORIDE
     Indication: Pruritus
     Route: 065

REACTIONS (8)
  - Breast cancer female [Unknown]
  - Metastases to liver [Unknown]
  - Transaminases increased [Unknown]
  - Blood bilirubin increased [Unknown]
  - Pruritus [Unknown]
  - Product prescribing issue [Unknown]
  - Product use in unapproved indication [Unknown]
  - Product use issue [Unknown]
